FAERS Safety Report 8570885-6 (Version None)
Quarter: 2012Q3

REPORT INFORMATION
  Report Type: 
  Country: None (occurrence: None)
  Receive Date: 20120806
  Receipt Date: 20120726
  Transmission Date: 20120928
  Serious: Yes (Other)
  Sender: FDA-Public Use
  Company Number: US-BIOGENIDEC-2012BI027530

PATIENT
  Age: 46 Year
  Sex: Female

DRUGS (1)
  1. AVONEX [Suspect]
     Indication: MULTIPLE SCLEROSIS
     Route: 030
     Dates: start: 20120630

REACTIONS (6)
  - DIARRHOEA [None]
  - BODY TEMPERATURE INCREASED [None]
  - HEADACHE [None]
  - BREAST CANCER [None]
  - VOMITING [None]
  - PAIN IN EXTREMITY [None]
